FAERS Safety Report 25643806 (Version 1)
Quarter: 2025Q3

REPORT INFORMATION
  Report Type: Spontaneous
  Country: US (occurrence: None)
  Receive Date: 20250802
  Receipt Date: 20250802
  Transmission Date: 20251021
  Serious: Yes (Hospitalization, Disabling, Other)
  Sender: FDA-CTU
  Company Number: None

PATIENT
  Age: 74 Year
  Sex: Male
  Weight: 70.65 kg

DRUGS (9)
  1. KEYTRUDA [Suspect]
     Active Substance: PEMBROLIZUMAB
     Indication: Metastasis
     Route: 042
     Dates: start: 20250227, end: 20250410
  2. Metoprolol Succinate 100mg PO BID [Concomitant]
  3. Pantoprozole 40mg po QD [Concomitant]
  4. Eliquis 5mg PO BID [Concomitant]
  5. Tamsulosin 0.4mg - 2 caps po HS [Concomitant]
  6. Atorvastatin 20mg po HS [Concomitant]
  7. Oxycodone 5mg po Q4-6H prn pain, Trellegy [Concomitant]
  8. Ferrous Sulfate 325mg QD [Concomitant]
  9. AERDS Eye Vitamins QD [Concomitant]

REACTIONS (11)
  - Hypotension [None]
  - Syncope [None]
  - Fall [None]
  - Limb injury [None]
  - Haemorrhagic stroke [None]
  - Agonal respiration [None]
  - Mental status changes [None]
  - Blood glucose increased [None]
  - Blood creatine increased [None]
  - Blood potassium increased [None]
  - Blood urea increased [None]

NARRATIVE: CASE EVENT DATE: 20250315
